FAERS Safety Report 8508006-8 (Version None)
Quarter: 2012Q3

REPORT INFORMATION
  Report Type: 
  Country: None (occurrence: None)
  Receive Date: 20120713
  Receipt Date: 20120701
  Transmission Date: 20120928
  Serious: Yes (Other)
  Sender: FDA-Public Use
  Company Number: AU-ASTELLAS-2012US006102

PATIENT

DRUGS (3)
  1. ERLOTINIB HYDROCHLORIDE [Suspect]
     Indication: COLORECTAL CANCER
     Dosage: 100 MG, UID/QD
     Route: 048
  2. CETUXIMAB [Suspect]
     Indication: COLORECTAL CANCER
     Dosage: 400 MG/M2, UNKNOWN/D
     Route: 042
  3. CETUXIMAB [Suspect]
     Dosage: 250 MG/M2, WEEKLY
     Route: 042

REACTIONS (2)
  - OFF LABEL USE [None]
  - PAIN [None]
